FAERS Safety Report 7335202-8 (Version None)
Quarter: 2011Q1

REPORT INFORMATION
  Report Type: 
  Country: None (occurrence: None)
  Receive Date: 20110307
  Receipt Date: 20110301
  Transmission Date: 20110831
  Serious: No
  Sender: FDA-Public Use
  Company Number: US-PFIZER INC-2011044439

PATIENT
  Age: 74 Year
  Sex: Male

DRUGS (2)
  1. GLUCOTROL [Suspect]
     Dosage: UNK
     Route: 048
  2. AVANDIA [Suspect]
     Dosage: UNK
     Route: 048

REACTIONS (1)
  - BLOOD GLUCOSE ABNORMAL [None]
